FAERS Safety Report 7162413-7 (Version None)
Quarter: 2010Q4

REPORT INFORMATION
  Report Type: 
  Country: None (occurrence: None)
  Receive Date: 20101215
  Receipt Date: 20101208
  Transmission Date: 20110411
  Serious: Yes (Hospitalization, Other)
  Sender: FDA-Public Use
  Company Number: US-JNJFOC-20100607590

PATIENT
  Sex: Female

DRUGS (3)
  1. LEVAQUIN [Suspect]
     Indication: BRONCHITIS
     Route: 048
  2. LEVAQUIN [Suspect]
     Indication: SINUSITIS
     Route: 048
  3. LEVAQUIN [Suspect]
     Indication: PNEUMONIA
     Route: 048

REACTIONS (4)
  - BURSITIS [None]
  - MUSCLE RUPTURE [None]
  - TENDON RUPTURE [None]
  - TENDONITIS [None]
